FAERS Safety Report 10574075 (Version 1)
Quarter: 2014Q4

REPORT INFORMATION
  Report Type: Spontaneous
  Country: KR (occurrence: KR)
  Receive Date: 20141110
  Receipt Date: 20141110
  Transmission Date: 20150529
  Serious: Yes (Other)
  Sender: FDA-Public Use
  Company Number: KR-BRISTOL-MYERS SQUIBB COMPANY-21548037

PATIENT
  Age: 51 Year
  Sex: Male

DRUGS (2)
  1. TRIMETAZIDINE [Concomitant]
     Active Substance: TRIMETAZIDINE
  2. BARACLUDE [Suspect]
     Active Substance: ENTECAVIR
     Indication: CHRONIC HEPATITIS B
     Dosage: .5 MG, QD
     Route: 048

REACTIONS (3)
  - Hepatic cirrhosis [Unknown]
  - Urticaria [Unknown]
  - Pruritus [Unknown]
